FAERS Safety Report 25414559 (Version 1)
Quarter: 2025Q2

REPORT INFORMATION
  Report Type: Spontaneous
  Country: US (occurrence: US)
  Receive Date: 20250609
  Receipt Date: 20250609
  Transmission Date: 20250716
  Serious: No
  Sender: SANOFI AVENTIS
  Company Number: US-SA-2025SA128908

PATIENT
  Sex: Female

DRUGS (4)
  1. DUPIXENT [Suspect]
     Active Substance: DUPILUMAB
     Indication: Sinus polyp
     Dosage: 300 MG, Q4W
     Route: 058
  2. REPATHA [Concomitant]
     Active Substance: EVOLOCUMAB
  3. OZEMPIC [Concomitant]
     Active Substance: SEMAGLUTIDE
  4. BUDESONIDE [Concomitant]
     Active Substance: BUDESONIDE

REACTIONS (2)
  - Gastritis [Unknown]
  - Weight increased [Unknown]
